FAERS Safety Report 15631255 (Version 1)
Quarter: 2018Q4

REPORT INFORMATION
  Report Type: Spontaneous
  Country: US (occurrence: US)
  Receive Date: 20181113
  Receipt Date: 20181113
  Transmission Date: 20190205
  Serious: Yes (Hospitalization, Other)
  Sender: FDA-Public Use
  Company Number: None

PATIENT
  Age: 51 Year
  Sex: Female
  Weight: 81 kg

DRUGS (14)
  1. OXTCODONE-ACETAMINOPHEN [Concomitant]
  2. TIZANIDINE. [Concomitant]
     Active Substance: TIZANIDINE
  3. FERROUS SULFATE. [Concomitant]
     Active Substance: FERROUS SULFATE
  4. XANAX [Concomitant]
     Active Substance: ALPRAZOLAM
  5. BIOTIN [Concomitant]
     Active Substance: BIOTIN
  6. ZAANTAC [Concomitant]
  7. WELLBUTRIN XL 150 [Concomitant]
  8. VITAMIN C WITH FOLIC ACID [Concomitant]
  9. GABAPENTIN. [Concomitant]
     Active Substance: GABAPENTIN
  10. VITAMIN B COMPLEX [Concomitant]
     Active Substance: CYANOCOBALAMIN\DEXPANTHENOL\NIACINAMIDE\PYRIDOXINE HYDROCHLORIDE\RIBOFLAVIN 5^-PHOSPHATE SODIUM\THIAMINE HYDROCHLORIDE\VITAMIN B COMPLEX
  11. DULOXETINE HCL DR 60MG CAPSULE  GENERIC FOR CYMBALTA 60MG CAPSULE [Suspect]
     Active Substance: DULOXETINE HYDROCHLORIDE
     Indication: PAIN MANAGEMENT
     Dosage: ?          QUANTITY:30 CAPSULE(S);?
     Route: 048
  12. PREVACID [Concomitant]
     Active Substance: LANSOPRAZOLE
  13. ADDERALL XR [Concomitant]
     Active Substance: AMPHETAMINE ASPARTATE\AMPHETAMINE SULFATE\DEXTROAMPHETAMINE SACCHARATE\DEXTROAMPHETAMINE SULFATE
  14. LEVOTHYROXINE. [Concomitant]
     Active Substance: LEVOTHYROXINE

REACTIONS (19)
  - Pruritus generalised [None]
  - Dyskinesia [None]
  - Confusional state [None]
  - Emotional disorder [None]
  - Mental impairment [None]
  - Paraesthesia [None]
  - Impaired healing [None]
  - Skin laceration [None]
  - Drug dependence [None]
  - Mood altered [None]
  - Disturbance in attention [None]
  - Anxiety [None]
  - Contusion [None]
  - Agitation [None]
  - Irritability [None]
  - Mania [None]
  - Impaired work ability [None]
  - Frustration tolerance decreased [None]
  - Emotional distress [None]

NARRATIVE: CASE EVENT DATE: 20170413
